FAERS Safety Report 17573769 (Version 20)
Quarter: 2023Q4

REPORT INFORMATION
  Report Type: Spontaneous
  Country: US (occurrence: US)
  Receive Date: 20200323
  Receipt Date: 20231114
  Transmission Date: 20240109
  Serious: Yes (Other)
  Sender: FDA-Public Use
  Company Number: US-PFIZER INC-2020121242

PATIENT
  Age: 45 Year
  Sex: Male
  Weight: 83.91 kg

DRUGS (6)
  1. BENEFIX [Suspect]
     Active Substance: COAGULATION FACTOR IX RECOMBINANT HUMAN\ISOPROPYL ALCOHOL
     Indication: Haemorrhage
     Dosage: UNK (4000 MODERATE BLEEDING 5000 MORE SEVERE BLEEDING)
  2. BENEFIX [Suspect]
     Active Substance: COAGULATION FACTOR IX RECOMBINANT HUMAN\ISOPROPYL ALCOHOL
     Dosage: 4000 IU, 2X/WEEK (FOR 12 DAYS)
     Route: 042
  3. BENEFIX [Suspect]
     Active Substance: COAGULATION FACTOR IX RECOMBINANT HUMAN\ISOPROPYL ALCOHOL
     Dosage: 8000 UNITS +/-10% ONCE
     Route: 042
  4. BENEFIX [Suspect]
     Active Substance: COAGULATION FACTOR IX RECOMBINANT HUMAN\ISOPROPYL ALCOHOL
     Dosage: 4000 UNITS +/- 10% DAILY X 3
     Route: 042
  5. BENEFIX [Suspect]
     Active Substance: COAGULATION FACTOR IX RECOMBINANT HUMAN\ISOPROPYL ALCOHOL
     Dosage: 4000 UNITS +/- 10% TWICE WEEKLY
     Route: 042
  6. BENEFIX [Suspect]
     Active Substance: COAGULATION FACTOR IX RECOMBINANT HUMAN\ISOPROPYL ALCOHOL
     Dosage: 4000 UNITS +/- 10% X2 DAILY PRN BLEEDING SYMPTOMS
     Route: 042

REACTIONS (14)
  - Ear haemorrhage [Not Recovered/Not Resolved]
  - Oesophageal haemorrhage [Unknown]
  - Skull fracture [Unknown]
  - Craniocerebral injury [Unknown]
  - Haemorrhage [Not Recovered/Not Resolved]
  - Pain [Not Recovered/Not Resolved]
  - Headache [Not Recovered/Not Resolved]
  - Head discomfort [Not Recovered/Not Resolved]
  - Hypoacusis [Unknown]
  - Ear disorder [Unknown]
  - Ear infection [Unknown]
  - Ear swelling [Unknown]
  - Stress [Unknown]
  - Confusional state [Unknown]
